FAERS Safety Report 12836724 (Version 1)
Quarter: 2016Q4

REPORT INFORMATION
  Report Type: Spontaneous
  Country: US (occurrence: US)
  Receive Date: 20161011
  Receipt Date: 20161011
  Transmission Date: 20170207
  Serious: Yes (Other)
  Sender: FDA-Public Use
  Company Number: US-GILEAD-2016-0233343

PATIENT
  Sex: Male
  Weight: 78 kg

DRUGS (4)
  1. HARVONI [Suspect]
     Active Substance: LEDIPASVIR\SOFOSBUVIR
     Indication: HEPATITIS C VIRUS TEST POSITIVE
     Dosage: UNK
     Route: 065
     Dates: start: 20151127, end: 20160513
  2. METFORMIN [Concomitant]
     Active Substance: METFORMIN HYDROCHLORIDE
  3. RAMIPRIL. [Concomitant]
     Active Substance: RAMIPRIL
  4. TRAZODONE [Concomitant]
     Active Substance: TRAZODONE HYDROCHLORIDE

REACTIONS (1)
  - Treatment failure [Unknown]
